FAERS Safety Report 5347027-3 (Version None)
Quarter: 2007Q2

REPORT INFORMATION
  Report Type: 
  Country: None (occurrence: None)
  Receive Date: 20070604
  Receipt Date: 20070518
  Transmission Date: 20071010
  Serious: Yes (Hospitalization)
  Sender: FDA-Public Use
  Company Number: 156911ISR

PATIENT
  Age: 29 Year
  Sex: Female

DRUGS (6)
  1. METHOTREXATE [Suspect]
     Indication: RHEUMATOID ARTHRITIS
     Dosage: 20 MG, 1 IN 1 WK, ORAL
     Route: 048
     Dates: start: 20030101
  2. ETANERCEPT [Concomitant]
  3. ADALIMUMAB [Concomitant]
  4. FOLIC ACID [Concomitant]
  5. CALCIGRAM [Concomitant]
  6. PREDNISOLONE [Concomitant]

REACTIONS (1)
  - VULVAL CANCER STAGE I [None]
